FAERS Safety Report 9887454 (Version 2)
Quarter: 2014Q1

REPORT INFORMATION
  Report Type: Spontaneous
  Country: US (occurrence: US)
  Receive Date: 20140211
  Receipt Date: 20140211
  Transmission Date: 20141002
  Serious: Yes (Hospitalization)
  Sender: FDA-Public Use
  Company Number: US-ROCHE-1337145

PATIENT
  Sex: Female

DRUGS (1)
  1. TAMIFLU [Suspect]
     Indication: INFLUENZA
     Dosage: 6MG/ML
     Route: 065
     Dates: start: 20140119, end: 20140119

REACTIONS (9)
  - Hallucination [Unknown]
  - Confusional state [Unknown]
  - Agitation [Unknown]
  - Psychomotor hyperactivity [Unknown]
  - Amnesia [Unknown]
  - Heart rate increased [Unknown]
  - Headache [Unknown]
  - Abdominal pain upper [Unknown]
  - Memory impairment [Unknown]
